FAERS Safety Report 7947599-6 (Version None)
Quarter: 2011Q4

REPORT INFORMATION
  Report Type: 
  Country: None (occurrence: None)
  Receive Date: 20111130
  Receipt Date: 20111122
  Transmission Date: 20120403
  Serious: Yes (Life-Threatening)
  Sender: FDA-Public Use
  Company Number: JP-AMGEN-JPNSP2011052111

PATIENT
  Age: 78 Year
  Sex: Female

DRUGS (4)
  1. ENBREL [Suspect]
     Indication: PRODUCT USED FOR UNKNOWN INDICATION
     Dosage: 50 MG, UNK
     Route: 058
  2. PROGRAF [Concomitant]
     Dosage: UNK
     Route: 048
  3. ALENDRONATE SODIUM [Concomitant]
     Dosage: UNK
     Route: 048
  4. BREDININ [Concomitant]
     Dosage: UNK
     Route: 048

REACTIONS (2)
  - SKIN CANCER [None]
  - PAIN [None]
